FAERS Safety Report 10310450 (Version 2)
Quarter: 2014Q3

REPORT INFORMATION
  Report Type: Spontaneous
  Country: US (occurrence: None)
  Receive Date: 20140715
  Receipt Date: 20140725
  Transmission Date: 20150326
  Serious: Yes (Hospitalization)
  Sender: FDA-Public Use
  Company Number: AUR-APL-2014-07332

PATIENT
  Age: 41 Year
  Sex: Male

DRUGS (6)
  1. SPIRONOLACTONE. [Concomitant]
     Active Substance: SPIRONOLACTONE
  2. CIPROFLOXACIN. [Suspect]
     Active Substance: CIPROFLOXACIN
     Indication: PRODUCT USED FOR UNKNOWN INDICATION
  3. ALLOPURINOL. [Concomitant]
     Active Substance: ALLOPURINOL
  4. FUROSEMIDE. [Concomitant]
     Active Substance: FUROSEMIDE
  5. LISINOPRIL. [Concomitant]
     Active Substance: LISINOPRIL
  6. METOLAZONE. [Concomitant]
     Active Substance: METOLAZONE

REACTIONS (12)
  - Diarrhoea [None]
  - Liver function test abnormal [None]
  - Nausea [None]
  - Renal failure acute [None]
  - Rash [None]
  - Pruritus [None]
  - Hepatic steatosis [None]
  - Hypersensitivity [None]
  - Drug-induced liver injury [None]
  - Hepatosplenomegaly [None]
  - Hepatic function abnormal [None]
  - Hepatic failure [None]
